FAERS Safety Report 6173690-3 (Version None)
Quarter: 2009Q2

REPORT INFORMATION
  Report Type: 
  Country: None (occurrence: None)
  Receive Date: 20090429
  Receipt Date: 20090429
  Transmission Date: 20091009
  Serious: No
  Sender: FDA-Public Use
  Company Number: None

PATIENT

DRUGS (1)
  1. DIGOXIN [Suspect]

REACTIONS (3)
  - CARDIAC DISORDER [None]
  - MULTIPLE INJURIES [None]
  - PRODUCT QUALITY ISSUE [None]
